FAERS Safety Report 13051267 (Version 1)
Quarter: 2016Q4

REPORT INFORMATION
  Report Type: Report from Study
  Country: FI (occurrence: FI)
  Receive Date: 20161221
  Receipt Date: 20161221
  Transmission Date: 20170207
  Serious: Yes (Other)
  Sender: FDA-Public Use
  Company Number: FI-MYLANLABS-2016M1056315

PATIENT

DRUGS (1)
  1. SODIUM TETRADECYL SULFATE [Suspect]
     Active Substance: SODIUM TETRADECYL SULFATE
     Indication: MALFORMATION VENOUS
     Dosage: 3% CONCENTRATION
     Route: 065

REACTIONS (3)
  - Skin necrosis [Unknown]
  - Facial paralysis [Unknown]
  - Muscle necrosis [Unknown]
